APPROVED DRUG PRODUCT: DAPTOMYCIN
Active Ingredient: DAPTOMYCIN
Strength: 500MG/VIAL
Dosage Form/Route: POWDER;INTRAVENOUS
Application: A217215 | Product #001 | TE Code: AP
Applicant: BIOCON PHARMA LTD
Approved: Aug 29, 2024 | RLD: No | RS: No | Type: RX